FAERS Safety Report 17687166 (Version 1)
Quarter: 2020Q2

REPORT INFORMATION
  Report Type: Spontaneous
  Country: US (occurrence: US)
  Receive Date: 20200421
  Receipt Date: 20200421
  Transmission Date: 20200714
  Serious: No
  Sender: FDA-Public Use
  Company Number: US-MSNLABS-2020MSNSPO00050

PATIENT

DRUGS (1)
  1. PREGABALIN CAPSULES 75 MG [Suspect]
     Active Substance: PREGABALIN
     Indication: POST POLIO SYNDROME
     Route: 048
     Dates: start: 201909

REACTIONS (2)
  - Drug ineffective for unapproved indication [Not Recovered/Not Resolved]
  - Pain [Not Recovered/Not Resolved]

NARRATIVE: CASE EVENT DATE: 202001
